FAERS Safety Report 9686547 (Version 1)
Quarter: 2013Q4

REPORT INFORMATION
  Report Type: Spontaneous
  Country: JP (occurrence: None)
  Receive Date: 20131108
  Receipt Date: 20131108
  Transmission Date: 20140711
  Serious: Yes (Death, Life-Threatening)
  Sender: FDA-Public Use
  Company Number: ABR_01234_2013

PATIENT
  Age: 66 Year
  Sex: Female
  Weight: 48 kg

DRUGS (2)
  1. GLIADEL [Suspect]
     Indication: MALIGNANT GLIOMA
     Dosage: 46.2 MG 1X INTRACEREBRAL
     Dates: start: 20131001, end: 20131004
  2. FOSTOIN-FOSPHENYTOIN SODIUM HYDRATE [Concomitant]

REACTIONS (7)
  - Altered state of consciousness [None]
  - Hemiplegia [None]
  - Brain oedema [None]
  - Mydriasis [None]
  - Cardio-respiratory arrest [None]
  - Sudden death [None]
  - Pulmonary embolism [None]
